FAERS Safety Report 8594111-7 (Version None)
Quarter: 2012Q3

REPORT INFORMATION
  Report Type: 
  Country: None (occurrence: None)
  Receive Date: 20120814
  Receipt Date: 20120806
  Transmission Date: 20120928
  Serious: No
  Sender: FDA-Public Use
  Company Number: US-009507513-1208USA003050

PATIENT

DRUGS (3)
  1. RIBASPHERE [Suspect]
  2. RIBAVIRIN [Suspect]
  3. PEG-INTRON [Suspect]
     Indication: HEPATITIS C
     Dosage: UNK
     Route: 058
     Dates: start: 20120731

REACTIONS (6)
  - THERAPEUTIC RESPONSE DECREASED [None]
  - INCORRECT STORAGE OF DRUG [None]
  - FATIGUE [None]
  - FEAR [None]
  - INJECTION SITE ERYTHEMA [None]
  - HEADACHE [None]
